FAERS Safety Report 23725225 (Version 1)
Quarter: 2024Q2

REPORT INFORMATION
  Report Type: Spontaneous
  Country: NL (occurrence: NL)
  Receive Date: 20240410
  Receipt Date: 20240410
  Transmission Date: 20240715
  Serious: Yes (Other)
  Sender: FDA-Public Use
  Company Number: NL-LRB-00960489

PATIENT
  Age: 84 Year
  Sex: Female
  Weight: 51 kg

DRUGS (1)
  1. TAMSULOSIN HYDROCHLORIDE [Suspect]
     Active Substance: TAMSULOSIN HYDROCHLORIDE
     Indication: Renal stone removal
     Dosage: 0.4 MILLIGRAM, ONCE A DAY(1 X PER DAG 1 STUK)
     Route: 065
     Dates: start: 20220421, end: 20240301

REACTIONS (1)
  - Syncope [Unknown]
